FAERS Safety Report 24779320 (Version 3)
Quarter: 2025Q1

REPORT INFORMATION
  Report Type: Report from Study
  Country: US (occurrence: US)
  Receive Date: 20241226
  Receipt Date: 20250121
  Transmission Date: 20250408
  Serious: Yes (Hospitalization)
  Sender: PFIZER
  Company Number: US-PFIZER INC-202400331084

PATIENT
  Age: 42 Year
  Sex: Female

DRUGS (1)
  1. TUKYSA [Suspect]
     Active Substance: TUCATINIB
     Dosage: 300 MG, 2X/DAY (TAKE 2 TABLETS TWICE A DAY)
     Route: 048
     Dates: start: 20241114, end: 20250116

REACTIONS (1)
  - Illness [Not Recovered/Not Resolved]
